FAERS Safety Report 24564920 (Version 1)
Quarter: 2024Q4

REPORT INFORMATION
  Report Type: Spontaneous
  Country: CN (occurrence: CN)
  Receive Date: 20241030
  Receipt Date: 20241030
  Transmission Date: 20250115
  Serious: Yes (Hospitalization, Other)
  Sender: PFIZER
  Company Number: CN-PFIZER INC-PV202400138241

PATIENT
  Age: 50 Year
  Sex: Female
  Weight: 65 kg

DRUGS (3)
  1. CYTARABINE [Suspect]
     Active Substance: CYTARABINE
     Indication: Acute myeloid leukaemia
     Dosage: 0.018 G, 2X/DAY
     Route: 041
     Dates: start: 20240807, end: 20240819
  2. ACLARUBICIN HYDROCHLORIDE [Suspect]
     Active Substance: ACLARUBICIN HYDROCHLORIDE
     Indication: Acute myeloid leukaemia
     Dosage: 20 MG, 1X/DAY
     Route: 041
     Dates: start: 20240807, end: 20240810
  3. AZACITIDINE [Suspect]
     Active Substance: AZACITIDINE
     Indication: Acute myeloid leukaemia
     Dosage: 138 MG, 1X/DAY
     Route: 058
     Dates: start: 20240807, end: 20240813

REACTIONS (5)
  - Myelosuppression [Recovering/Resolving]
  - Epistaxis [Recovering/Resolving]
  - Ecchymosis [Unknown]
  - Pyrexia [Recovering/Resolving]
  - Infection [Unknown]

NARRATIVE: CASE EVENT DATE: 20240813
